FAERS Safety Report 6052968-8 (Version None)
Quarter: 2009Q1

REPORT INFORMATION
  Report Type: 
  Country: None (occurrence: None)
  Receive Date: 20090127
  Receipt Date: 20081016
  Transmission Date: 20090719
  Serious: No
  Sender: FDA-Public Use
  Company Number: US-ABBOTT-08P-163-0482238-00

PATIENT
  Sex: Male

DRUGS (3)
  1. LUPRON DEPOT [Suspect]
     Indication: PROSTATE CANCER
     Route: 030
     Dates: start: 20081016, end: 20081016
  2. LUPRON DEPOT [Suspect]
     Route: 030
     Dates: start: 20081017, end: 20081017
  3. LUPRON DEPOT [Suspect]
     Route: 030

REACTIONS (1)
  - UNDERDOSE [None]
